FAERS Safety Report 10549406 (Version 1)
Quarter: 2014Q4

REPORT INFORMATION
  Report Type: Spontaneous
  Country: JP (occurrence: JP)
  Receive Date: 20141028
  Receipt Date: 20141028
  Transmission Date: 20150529
  Serious: Yes (Life-Threatening, Hospitalization, Other)
  Sender: FDA-Public Use
  Company Number: JP-TEVA-517636ISR

PATIENT
  Age: 61 Year
  Sex: Male

DRUGS (2)
  1. TRICHLORMETHIAZIDE [Suspect]
     Active Substance: TRICHLORMETHIAZIDE
     Indication: CARDIAC FAILURE CONGESTIVE
     Dosage: 1 MILLIGRAM DAILY;
     Route: 065
  2. FUROSEMIDE. [Suspect]
     Active Substance: FUROSEMIDE
     Indication: CARDIAC FAILURE CONGESTIVE
     Dosage: 40 MILLIGRAM DAILY;
     Route: 042

REACTIONS (5)
  - Vitamin B1 deficiency [Recovering/Resolving]
  - Cardiac failure high output [Recovering/Resolving]
  - Acute kidney injury [Recovered/Resolved]
  - Shoshin beriberi [Recovering/Resolving]
  - Wernicke^s encephalopathy [Recovered/Resolved]
